FAERS Safety Report 6187827-3 (Version None)
Quarter: 2009Q2

REPORT INFORMATION
  Report Type: 
  Country: None (occurrence: None)
  Receive Date: 20090511
  Receipt Date: 20090511
  Transmission Date: 20091009
  Serious: Yes (Other)
  Sender: FDA-Public Use
  Company Number: None

PATIENT
  Age: 57 Year
  Sex: Female
  Weight: 68.0396 kg

DRUGS (1)
  1. PIROXICAM [Suspect]
     Indication: PAIN IN EXTREMITY
     Dosage: 1 DAILY AS NEEDED
     Dates: start: 20090410

REACTIONS (2)
  - RASH [None]
  - SWELLING FACE [None]
